FAERS Safety Report 4558656-9 (Version None)
Quarter: 2005Q1

REPORT INFORMATION
  Report Type: 
  Country: None (occurrence: None)
  Receive Date: 20050112
  Receipt Date: 20050112
  Transmission Date: 20050727
  Serious: Yes (Other)
  Sender: FDA-Public Use
  Company Number: None

PATIENT
  Sex: Female

DRUGS (7)
  1. QUESTRAN [Suspect]
     Indication: CHOLECYSTECTOMY
     Dosage: 1 PACKET BID PO
     Route: 048
     Dates: start: 20000701
  2. QUESTRAN LIGHT [Suspect]
     Indication: INCONTINENCE
     Dosage: 1 PACKET PO BID
     Route: 048
     Dates: start: 20000701
  3. ACCOLATE [Concomitant]
  4. ALBUTEROL [Concomitant]
  5. DETROL [Concomitant]
  6. NAPROXEN [Concomitant]
  7. LOMITIL [Concomitant]

REACTIONS (2)
  - DIARRHOEA [None]
  - PHARMACEUTICAL PRODUCT COMPLAINT [None]
